FAERS Safety Report 9770133 (Version 6)
Quarter: 2014Q2

REPORT INFORMATION
  Report Type: Spontaneous
  Country: US (occurrence: US)
  Receive Date: 20131218
  Receipt Date: 20140613
  Transmission Date: 20141212
  Serious: Yes (Other)
  Sender: FDA-Public Use
  Company Number: US-BAYER-2013-154291

PATIENT
  Age: 25 Year
  Sex: Female
  Weight: 67.12 kg

DRUGS (2)
  1. MIRENA [Suspect]
     Indication: CONTRACEPTION
     Dosage: 20 MCG/24HR, CONT
     Route: 015
     Dates: start: 20131205, end: 20131212
  2. MIRENA [Suspect]
     Indication: MENORRHAGIA
     Dosage: 20 ?G/D, CONT
     Route: 015
     Dates: start: 20131212, end: 20131212

REACTIONS (4)
  - Genital haemorrhage [None]
  - Device dislocation [Recovered/Resolved]
  - Embedded device [None]
  - Device deployment issue [None]
